FAERS Safety Report 17050835 (Version 1)
Quarter: 2019Q4

REPORT INFORMATION
  Report Type: Spontaneous
  Country: US (occurrence: US)
  Receive Date: 20191120
  Receipt Date: 20191120
  Transmission Date: 20200122
  Serious: Yes (Hospitalization, Other)
  Sender: FDA-Public Use
  Company Number: US-AUROBINDO-AUR-APL-2019-072888

PATIENT
  Age: 74 Year
  Sex: Male

DRUGS (3)
  1. IMMUNOGLOBULIN [Concomitant]
     Indication: POLYMYOSITIS
     Dosage: UNK
     Route: 041
  2. METHYLPREDNISOLONE. [Suspect]
     Active Substance: METHYLPREDNISOLONE
     Indication: POLYMYOSITIS
     Dosage: 1 MILLIGRAM/KILOGRAM, ONCE A DAY
     Route: 065
  3. METHYLPREDNISOLONE. [Suspect]
     Active Substance: METHYLPREDNISOLONE
     Dosage: 1 GRAM, ONCE A DAY (PULSE DOSE)
     Route: 065

REACTIONS (3)
  - Amoebiasis [Unknown]
  - Amoebic colitis [Unknown]
  - Granuloma [Unknown]
